FAERS Safety Report 8601208-1 (Version None)
Quarter: 2012Q3

REPORT INFORMATION
  Report Type: 
  Country: None (occurrence: None)
  Receive Date: 20120817
  Receipt Date: 20120810
  Transmission Date: 20120928
  Serious: Yes (Hospitalization)
  Sender: FDA-Public Use
  Company Number: PHHY2012NO070433

PATIENT
  Age: 82 Year
  Sex: Female

DRUGS (3)
  1. METFORMIN HCL [Suspect]
     Dosage: 500 MG, DAILY
  2. ESIDRIX [Suspect]
     Dosage: 25 MG, UNK
     Dates: end: 20120723
  3. BUMETANIDE [Suspect]
     Dosage: 1 MG, BID

REACTIONS (7)
  - VOMITING [None]
  - RENAL FAILURE [None]
  - DEHYDRATION [None]
  - CONSTIPATION [None]
  - HYPOKALAEMIA [None]
  - DECREASED APPETITE [None]
  - NAUSEA [None]
